FAERS Safety Report 6767203-2 (Version None)
Quarter: 2010Q2

REPORT INFORMATION
  Report Type: 
  Country: None (occurrence: None)
  Receive Date: 20100614
  Receipt Date: 20100603
  Transmission Date: 20101027
  Serious: Yes (Other)
  Sender: FDA-Public Use
  Company Number: AU-JNJFOC-20100601710

PATIENT
  Sex: Male

DRUGS (5)
  1. SIMPONI [Suspect]
     Indication: RHEUMATOID ARTHRITIS
     Route: 058
  2. SIMPONI [Suspect]
     Route: 058
  3. MICARDIS HCT [Suspect]
     Indication: DRUG USE FOR UNKNOWN INDICATION
  4. ASPIRIN [Concomitant]
  5. CHOLESTEROL LOWERING MEDICATION [Concomitant]

REACTIONS (3)
  - INJECTION SITE HAEMATOMA [None]
  - TRANSIENT ISCHAEMIC ATTACK [None]
  - VASCULITIS [None]
